FAERS Safety Report 12158739 (Version 2)
Quarter: 2019Q1

REPORT INFORMATION
  Report Type: Spontaneous
  Country: US (occurrence: US)
  Receive Date: 20160308
  Receipt Date: 20190121
  Transmission Date: 20190417
  Serious: No
  Sender: FDA-Public Use
  Company Number: US-JNJFOC-20160124076

PATIENT
  Age: 76 Year
  Sex: Female
  Weight: 83.92 kg

DRUGS (1)
  1. TYLENOL EXTRA STRENGTH [Suspect]
     Active Substance: ACETAMINOPHEN
     Indication: ARTHRITIS
     Dosage: TOOK ONCE IN THE MORNING AND ONCE AT NIGHT. CONSUMING FOR YEARS
     Route: 048

REACTIONS (1)
  - Inappropriate schedule of product administration [Unknown]
